FAERS Safety Report 9336015 (Version 3)
Quarter: 2013Q4

REPORT INFORMATION
  Report Type: Report from Study
  Country: US (occurrence: US)
  Receive Date: 20130607
  Receipt Date: 20131216
  Transmission Date: 20140711
  Serious: Yes (Hospitalization)
  Sender: FDA-Public Use
  Company Number: US-BIOGENIDEC-2013BI045419

PATIENT
  Age: 31 Year
  Sex: Female
  Weight: 72 kg

DRUGS (7)
  1. TYSABRI [Suspect]
     Indication: CROHN^S DISEASE
     Route: 042
     Dates: start: 20110712
  2. TYLENOL [Concomitant]
  3. TRAZODONE [Concomitant]
     Indication: SLEEP DISORDER
     Route: 048
  4. ALPRAZOLAM [Concomitant]
     Indication: ANXIETY
     Route: 048
  5. DOXYCYCLINE [Concomitant]
     Indication: EAR INFECTION
     Route: 048
  6. CLARITIN [Concomitant]
     Indication: SEASONAL ALLERGY
     Route: 048
  7. NEXIUM [Concomitant]
     Indication: GASTROOESOPHAGEAL REFLUX DISEASE
     Route: 048

REACTIONS (3)
  - Crohn^s disease [Recovered/Resolved with Sequelae]
  - Ileal stenosis [Recovered/Resolved]
  - Abdominal adhesions [Recovered/Resolved]
